FAERS Safety Report 17266143 (Version 1)
Quarter: 2020Q1

REPORT INFORMATION
  Report Type: Report from Study
  Country: CA (occurrence: CA)
  Receive Date: 20200114
  Receipt Date: 20200114
  Transmission Date: 20200409
  Serious: Yes (Other)
  Sender: FDA-Public Use
  Company Number: CA-GLAXOSMITHKLINE-CA2020AMR006139

PATIENT
  Sex: Male

DRUGS (1)
  1. MEPOLIZUMAB [Suspect]
     Active Substance: MEPOLIZUMAB
     Indication: ASTHMA
     Dosage: 100 MG, Z,MONTHLY
     Route: 042
     Dates: start: 20190606

REACTIONS (6)
  - Dyspnoea [Unknown]
  - Loss of consciousness [Unknown]
  - Fall [Unknown]
  - Cough [Unknown]
  - Contusion [Unknown]
  - Ecchymosis [Unknown]
